FAERS Safety Report 23625076 (Version 1)
Quarter: 2024Q1

REPORT INFORMATION
  Report Type: Spontaneous
  Country: CH (occurrence: CH)
  Receive Date: 20240313
  Receipt Date: 20240313
  Transmission Date: 20240409
  Serious: Yes (Death, Hospitalization)
  Sender: FDA-Public Use
  Company Number: None

PATIENT
  Age: 78 Year
  Sex: Male
  Weight: 120 kg

DRUGS (14)
  1. METHOTREXATE [Suspect]
     Active Substance: METHOTREXATE
     Indication: Psoriasis
     Dosage: STRENGTH:2.5MG ?2-0-3 AFTER MEALS
     Dates: end: 20240110
  2. ALDACTONE [Concomitant]
     Active Substance: SPIRONOLACTONE
  3. ALLOPURINOL [Concomitant]
     Active Substance: ALLOPURINOL
  4. ASS CARDIO SPIRIG HC [Concomitant]
  5. ATORVASTATIN [Concomitant]
     Active Substance: ATORVASTATIN
  6. DUTASTERIDE\TAMSULOSIN [Concomitant]
     Active Substance: DUTASTERIDE\TAMSULOSIN
     Dosage: 0.5/0.4.MG
  7. EUTHYROX [Concomitant]
     Active Substance: LEVOTHYROXINE SODIUM
     Indication: Hypothyroidism
  8. FOLIC ACID STREULI [Concomitant]
  9. NEBIVOLOL [Concomitant]
     Active Substance: NEBIVOLOL
  10. PANTOPRAZOLE SODIUM [Concomitant]
     Active Substance: PANTOPRAZOLE SODIUM
  11. PREGABALIN [Concomitant]
     Active Substance: PREGABALIN
  12. HERBALS\TROSPIUM [Concomitant]
     Active Substance: HERBALS\TROSPIUM
  13. TORSEMIDE [Concomitant]
     Active Substance: TORSEMIDE
  14. CHOLECALCIFEROL [Concomitant]
     Active Substance: CHOLECALCIFEROL

REACTIONS (5)
  - Thrombocytopenia [Fatal]
  - Stomatitis haemorrhagic [Fatal]
  - Toxicity to various agents [Unknown]
  - General physical health deterioration [Not Recovered/Not Resolved]
  - Adverse drug reaction [Unknown]

NARRATIVE: CASE EVENT DATE: 20240103
